FAERS Safety Report 4281969-5 (Version None)
Quarter: 2004Q1

REPORT INFORMATION
  Report Type: 
  Country: None (occurrence: None)
  Receive Date: 20040128
  Receipt Date: 20031115
  Transmission Date: 20041129
  Serious: Yes (Other)
  Sender: FDA-Public Use
  Company Number: KII-2003-0006812

PATIENT
  Age: 77 Year
  Sex: Female

DRUGS (2)
  1. BUPRENORPHINE (SIMILAR TO IND 50,273) (BUPRENORPHINE)UNKNOWN [Suspect]
     Indication: DRUG USE FOR UNKNOWN INDICATION
     Dosage: ORAL
     Route: 048
     Dates: start: 20031022
  2. BENZODIAZEPINE DERIVATIVES() [Suspect]
     Indication: DRUG USE FOR UNKNOWN INDICATION

REACTIONS (5)
  - APHASIA [None]
  - LOOSE STOOLS [None]
  - MENTAL STATUS CHANGES [None]
  - MYOCLONUS [None]
  - PYREXIA [None]
